FAERS Safety Report 6598059-9 (Version None)
Quarter: 2010Q1

REPORT INFORMATION
  Report Type: 
  Country: None (occurrence: None)
  Receive Date: 20100216
  Receipt Date: 20100201
  Transmission Date: 20100710
  Serious: Yes (Hospitalization, Other)
  Sender: FDA-Public Use
  Company Number: AUR-APL-2010-00425

PATIENT
  Age: 80 Year
  Sex: Male

DRUGS (6)
  1. GABAPENTIN [Suspect]
     Indication: EPILEPSY
     Dosage: 3 GM, DAILY, ORAL
     Route: 048
  2. SIMVASTATIN [Suspect]
     Indication: HYPERLIPIDAEMIA
     Dosage: 10 MG, DAILY, ORAL
     Route: 048
  3. ADALIX 50MG/20MG HARD CAPSULE [Suspect]
     Indication: CARDIAC FAILURE
     Dosage: 50MG/20MG, HARD CAPSULE, 2 DOSES WEEKLY, ORAL
     Route: 048
  4. PREVISCAN 20 MG TABLET [Suspect]
     Dosage: 20MG, DAILY, ORAL
     Route: 048
     Dates: end: 20100109
  5. DIGOXIN [Suspect]
     Indication: MYOCARDIAL ISCHAEMIA
     Dosage: 0.25MG, DAILY;
  6. NITRIDERM TTS (GLYCERYL TRINITRATE) TRANSDERMAL PATCH [Suspect]
     Indication: CARDIAC FAILURE
     Dosage: 5MG/24HR; TRANSDERMAL
     Route: 062

REACTIONS (3)
  - PELVIC HAEMATOMA [None]
  - PROSTATOMEGALY [None]
  - URINARY RETENTION [None]
